FAERS Safety Report 10442719 (Version 4)
Quarter: 2014Q4

REPORT INFORMATION
  Report Type: Spontaneous
  Country: US (occurrence: US)
  Receive Date: 20140909
  Receipt Date: 20141126
  Transmission Date: 20150528
  Serious: No
  Sender: FDA-Public Use
  Company Number: US-ELI_LILLY_AND_COMPANY-US201407006000

PATIENT
  Sex: Female
  Weight: 70.3 kg

DRUGS (2)
  1. NOVOLOG [Suspect]
     Active Substance: INSULIN ASPART
     Indication: PRODUCT USED FOR UNKNOWN INDICATION
     Dosage: UNK
     Route: 058
  2. HUMALOG [Suspect]
     Active Substance: INSULIN LISPRO
     Indication: TYPE 1 DIABETES MELLITUS
     Dosage: UNK UNK, PRN
     Route: 058
     Dates: start: 201405

REACTIONS (8)
  - Blood glucose fluctuation [Unknown]
  - Blood glucose increased [Recovering/Resolving]
  - Memory impairment [Unknown]
  - Infusion site scar [Unknown]
  - Wrong drug administered [Unknown]
  - Attention deficit/hyperactivity disorder [Unknown]
  - Fatigue [Unknown]
  - Drug ineffective [Unknown]
